FAERS Safety Report 6817068-5 (Version None)
Quarter: 2010Q3

REPORT INFORMATION
  Report Type: 
  Country: None (occurrence: None)
  Receive Date: 20100706
  Receipt Date: 20100624
  Transmission Date: 20110219
  Serious: Yes (Other)
  Sender: FDA-Public Use
  Company Number: DE-WYE-G05937910

PATIENT
  Sex: Male

DRUGS (1)
  1. TREVILOR RETARD [Suspect]
     Dosage: 150 MG, FREQUENCY UNKNOWN
     Route: 048

REACTIONS (2)
  - DRUG WITHDRAWAL SYNDROME [None]
  - HYPERTENSIVE CRISIS [None]
